FAERS Safety Report 14998291 (Version 1)
Quarter: 2018Q2

REPORT INFORMATION
  Report Type: Spontaneous
  Country: US (occurrence: US)
  Receive Date: 20180611
  Receipt Date: 20180611
  Transmission Date: 20180711
  Serious: Yes (Other)
  Sender: FDA-Public Use
  Company Number: US-VIFOR (INTERNATIONAL) INC.-VIT-2016-03135

PATIENT
  Age: 85 Year
  Sex: Male

DRUGS (14)
  1. ACETYLSALICYLIC ACID [Concomitant]
     Active Substance: ASPIRIN
  2. DOCUSATE SODIUM. [Concomitant]
     Active Substance: DOCUSATE SODIUM
  3. LEVAQUIN [Concomitant]
     Active Substance: LEVOFLOXACIN
  4. SIMVASTATIN. [Concomitant]
     Active Substance: SIMVASTATIN
  5. ZINC GLUCONATE [Concomitant]
     Active Substance: ZINC GLUCONATE
  6. ASCORBIC ACID. [Concomitant]
     Active Substance: ASCORBIC ACID
  7. COLECALCIFEROL [Concomitant]
     Active Substance: CHOLECALCIFEROL
  8. CLOPIDOGREL BISULFATE. [Concomitant]
     Active Substance: CLOPIDOGREL BISULFATE
  9. DOXYCYCLINE HYCLATE. [Concomitant]
     Active Substance: DOXYCYCLINE HYCLATE
  10. LOTREL [Concomitant]
     Active Substance: AMLODIPINE BESYLATE\BENAZEPRIL HYDROCHLORIDE
  11. CYANOCOBALAMIN. [Concomitant]
     Active Substance: CYANOCOBALAMIN
  12. VELTASSA [Suspect]
     Active Substance: PATIROMER
     Indication: HYPERKALAEMIA
     Route: 048
     Dates: start: 20160521
  13. FISH OIL [Concomitant]
     Active Substance: FISH OIL
  14. LISINOPRIL. [Concomitant]
     Active Substance: LISINOPRIL

REACTIONS (1)
  - Foot operation [Recovering/Resolving]

NARRATIVE: CASE EVENT DATE: 20180413
